FAERS Safety Report 8275699-2 (Version None)
Quarter: 2012Q1

REPORT INFORMATION
  Report Type: 
  Country: None (occurrence: None)
  Receive Date: 20120309
  Receipt Date: 20111114
  Transmission Date: 20120608
  Serious: No
  Sender: FDA-Public Use
  Company Number: TH-2012-00009

PATIENT
  Age: 57 Year
  Sex: Male
  Weight: 68 kg

DRUGS (4)
  1. MULTIPLE UNSPECIFIED MEDICATIONS [Concomitant]
  2. EGRIFTA [Suspect]
     Indication: LIPODYSTROPHY ACQUIRED
     Dosage: 1 IN 1 D, 1 IN 1 D, 1 IN 1 D
     Dates: start: 20111101
  3. EGRIFTA [Suspect]
     Indication: LIPODYSTROPHY ACQUIRED
     Dosage: 1 IN 1 D, 1 IN 1 D, 1 IN 1 D
     Dates: start: 20110701, end: 20111001
  4. EGRIFTA [Suspect]
     Indication: LIPODYSTROPHY ACQUIRED
     Dosage: 1 IN 1 D, 1 IN 1 D, 1 IN 1 D
     Dates: start: 20111001, end: 20111101

REACTIONS (2)
  - POST PROCEDURAL DRAINAGE [None]
  - ARTHRALGIA [None]
